FAERS Safety Report 6025766-9 (Version None)
Quarter: 2008Q4

REPORT INFORMATION
  Report Type: 
  Country: None (occurrence: None)
  Receive Date: 20081224
  Receipt Date: 20080204
  Transmission Date: 20090506
  Serious: Yes (Congenital Anomaly)
  Sender: FDA-Public Use
  Company Number: GXBR2008US02331

PATIENT
  Sex: Male

DRUGS (1)
  1. PAROXETINE HCL [Suspect]
     Dosage: MATERNAL DOSE: TRANSPLACENTAL

REACTIONS (5)
  - ATRIAL SEPTAL DEFECT [None]
  - CONGENITAL AORTIC STENOSIS [None]
  - MATERNAL DRUGS AFFECTING FOETUS [None]
  - PULMONARY VALVE STENOSIS [None]
  - PYLORIC STENOSIS [None]
